FAERS Safety Report 19707347 (Version 1)
Quarter: 2021Q3

REPORT INFORMATION
  Report Type: Spontaneous
  Country: US (occurrence: US)
  Receive Date: 20210817
  Receipt Date: 20210817
  Transmission Date: 20211014
  Serious: Yes (Other)
  Sender: FDA-Public Use
  Company Number: None

PATIENT
  Sex: Male

DRUGS (14)
  1. DEXAMETHASONE. [Concomitant]
     Active Substance: DEXAMETHASONE
  2. OMEPRAZOLE. [Concomitant]
     Active Substance: OMEPRAZOLE
  3. METFORMIN [Concomitant]
     Active Substance: METFORMIN HYDROCHLORIDE
  4. AVASTIN [Concomitant]
     Active Substance: BEVACIZUMAB
  5. GLIPIZIDE. [Concomitant]
     Active Substance: GLIPIZIDE
  6. IRINOTECAN [Concomitant]
     Active Substance: IRINOTECAN
  7. LEUCOVORIN. [Concomitant]
     Active Substance: LEUCOVORIN
  8. OXALIPLATIN. [Concomitant]
     Active Substance: OXALIPLATIN
  9. LIPITOR [Concomitant]
     Active Substance: ATORVASTATIN CALCIUM
  10. LORATADINE. [Concomitant]
     Active Substance: LORATADINE
  11. ZOFRAN [Concomitant]
     Active Substance: ONDANSETRON HYDROCHLORIDE
  12. CAPECITABINE 500 MG TAB [Suspect]
     Active Substance: CAPECITABINE
     Indication: COLON CANCER
     Route: 048
  13. ADRUCIL [Concomitant]
     Active Substance: FLUOROURACIL
  14. IBUPROFEN. [Concomitant]
     Active Substance: IBUPROFEN

REACTIONS (1)
  - Neoplasm [None]
